FAERS Safety Report 5060147-6 (Version None)
Quarter: 2006Q3

REPORT INFORMATION
  Report Type: 
  Country: None (occurrence: None)
  Receive Date: 20060724
  Receipt Date: 20060711
  Transmission Date: 20061208
  Serious: Yes (Hospitalization, Other)
  Sender: FDA-Public Use
  Company Number: FRWYE138313JUL06

PATIENT
  Age: 80 Year
  Sex: Female

DRUGS (7)
  1. ENBREL [Suspect]
     Indication: DRUG USE FOR UNKNOWN INDICATION
     Dosage: UNKNOWN
     Route: 058
  2. ENBREL [Suspect]
     Dosage: UNKNOWN
     Route: 058
     Dates: start: 20060101, end: 20060501
  3. ENBREL [Suspect]
     Dosage: UNKNOWN
     Route: 058
     Dates: start: 20060101
  4. EFFEXOR [Concomitant]
     Indication: DEPRESSION
     Dosage: UNKNOWN
     Route: 048
  5. NEXIUM [Concomitant]
     Dosage: UNKNOWN
     Route: 048
  6. CORTANCYL [Concomitant]
     Route: 048
  7. SKENAN [Concomitant]
     Dosage: 20 MG TOTAL DAILY
     Route: 048
     Dates: start: 20050901

REACTIONS (7)
  - CHOLECYSTITIS [None]
  - ERYSIPELAS [None]
  - HAEMOGLOBIN DECREASED [None]
  - NEUTROPENIA [None]
  - PELVIC FRACTURE [None]
  - SKIN ULCER [None]
  - TELANGIECTASIA [None]
